FAERS Safety Report 4668238-6 (Version None)
Quarter: 2005Q2

REPORT INFORMATION
  Report Type: 
  Country: None (occurrence: None)
  Receive Date: 20050523
  Receipt Date: 20050224
  Transmission Date: 20051028
  Serious: Yes (Disabling, Other)
  Sender: FDA-Public Use
  Company Number: PHEH2005US02467

PATIENT
  Sex: Female
  Weight: 71 kg

DRUGS (2)
  1. ZOMETA [Suspect]
     Indication: MULTIPLE MYELOMA
     Dosage: 4 MG, QMO
     Dates: start: 20031201, end: 20040701
  2. PROCRIT /00928302/ [Concomitant]
     Dosage: UNK, QW

REACTIONS (3)
  - ASEPTIC NECROSIS BONE [None]
  - BONE DISORDER [None]
  - PAIN IN JAW [None]
